FAERS Safety Report 19627831 (Version 4)
Quarter: 2021Q4

REPORT INFORMATION
  Report Type: Report from Study
  Country: BE (occurrence: BE)
  Receive Date: 20210728
  Receipt Date: 20211116
  Transmission Date: 20220304
  Serious: Yes (Hospitalization)
  Sender: FDA-Public Use
  Company Number: BE-MERCK HEALTHCARE KGAA-9251995

PATIENT
  Age: 65 Year
  Weight: 86 kg

DRUGS (12)
  1. AVELUMAB [Suspect]
     Active Substance: AVELUMAB
     Indication: Bladder transitional cell carcinoma
     Dosage: 870 MG, CYCLIC (ONCE IN 2 WEEKS)
     Route: 042
     Dates: start: 20210120
  2. AVELUMAB [Suspect]
     Active Substance: AVELUMAB
     Dosage: 870 MG, CYCLIC (ONCE IN 2 WEEKS)
     Route: 042
     Dates: start: 20210310
  3. GEMCITABINE HYDROCHLORIDE [Suspect]
     Active Substance: GEMCITABINE HYDROCHLORIDE
     Indication: Bladder transitional cell carcinoma
     Dosage: 2000 MG, CYCLIC (ONCE IN 4 WEEKS)
     Route: 042
     Dates: start: 20210120
  4. GEMCITABINE HYDROCHLORIDE [Suspect]
     Active Substance: GEMCITABINE HYDROCHLORIDE
     Dosage: 2000 MG, CYCLIC (ONCE IN 4 WEEKS)
     Route: 042
     Dates: start: 20210310
  5. PACLITAXEL [Suspect]
     Active Substance: PACLITAXEL
     Indication: Bladder transitional cell carcinoma
     Dosage: 160 MG, CYCLIC (ONCE IN 4 WEEKS)
     Route: 042
     Dates: start: 20210120
  6. PACLITAXEL [Suspect]
     Active Substance: PACLITAXEL
     Dosage: 160 MG, CYCLIC (ONCE IN 4 WEEKS)
     Route: 042
     Dates: start: 20210310
  7. KARDEGIC [Concomitant]
     Active Substance: ASPIRIN DL-LYSINE
     Dosage: 75 MG, 1X/DAY
  8. ATORVASTATIN [Concomitant]
     Active Substance: ATORVASTATIN
     Dosage: 40 MG, 1X/DAY
  9. BISOPROLOL [Concomitant]
     Active Substance: BISOPROLOL
     Dosage: 10 MG, 1X/DAY
  10. SPIRONOLACTONE [Concomitant]
     Active Substance: SPIRONOLACTONE
     Dosage: 25 MG, 1X/DAY
  11. FUROSEMIDE [Concomitant]
     Active Substance: FUROSEMIDE
     Dosage: 40 MG, ONCE IN 0.3 DAY
  12. CELIPROLOL [Concomitant]
     Active Substance: CELIPROLOL
     Dosage: 20 MG, 1X/DAY

REACTIONS (2)
  - Post procedural sepsis [Recovered/Resolved]
  - Anastomotic fistula [Recovered/Resolved]

NARRATIVE: CASE EVENT DATE: 20210413
